FAERS Safety Report 10692774 (Version 1)
Quarter: 2014Q4

REPORT INFORMATION
  Report Type: Spontaneous
  Country: US (occurrence: None)
  Receive Date: 20141223
  Receipt Date: 20141223
  Transmission Date: 20150529
  Serious: Yes (Other)
  Sender: FDA-Public Use
  Company Number: AUR-APL-2014-04085

PATIENT
  Sex: Male
  Weight: 88.5 kg

DRUGS (6)
  1. ENALAPRIL (ENALAPRIL) [Concomitant]
     Active Substance: ENALAPRIL
  2. ATENOLOL (ATENOLOL) [Concomitant]
     Active Substance: ATENOLOL
  3. FINASTERIDE. [Suspect]
     Active Substance: FINASTERIDE
     Indication: PROSTATOMEGALY
     Dosage: 5 MG, ONCE A DAY, UNKNOWN
  4. FINASTERIDE. [Suspect]
     Active Substance: FINASTERIDE
     Indication: PROPHYLAXIS
     Dosage: 5 MG, ONCE A DAY, UNKNOWN
  5. COUMADIN [Concomitant]
     Active Substance: WARFARIN SODIUM
  6. SIMVASTATIN (SIMVASTATIN) [Concomitant]
     Active Substance: SIMVASTATIN

REACTIONS (2)
  - Gynaecomastia [None]
  - Breast tenderness [None]
